FAERS Safety Report 4787675-2 (Version None)
Quarter: 2005Q3

REPORT INFORMATION
  Report Type: 
  Country: None (occurrence: None)
  Receive Date: 20050926
  Receipt Date: 20050817
  Transmission Date: 20060218
  Serious: Yes (Other)
  Sender: FDA-Public Use
  Company Number: 217009

PATIENT
  Sex: Female

DRUGS (2)
  1. AVASTIN (BEVACIZUMAB) PWDR + SOLVENT, INFUSION SOLN, 100 MG [Suspect]
     Indication: COLON CANCER
  2. OXALIPLATIN (OXALIPLATIN) [Suspect]
     Indication: COLON CANCER

REACTIONS (1)
  - POLYSEROSITIS [None]
